FAERS Safety Report 9956042 (Version 1)
Quarter: 2014Q1

REPORT INFORMATION
  Report Type: Report from Study
  Country: US (occurrence: US)
  Receive Date: 20140304
  Receipt Date: 20140304
  Transmission Date: 20141002
  Serious: No
  Sender: FDA-Public Use
  Company Number: US-ABBVIE-13P-163-1090360-00

PATIENT
  Age: 40 Year
  Sex: Female

DRUGS (5)
  1. HUMIRA [Suspect]
     Indication: CROHN^S DISEASE
     Dates: start: 20130315
  2. MULTIVITAMIN [Concomitant]
     Indication: PRODUCT USED FOR UNKNOWN INDICATION
     Dosage: DAILY
     Route: 048
  3. GENERIC DIARRHEA PILL [Concomitant]
     Indication: DIARRHOEA
     Dosage: 6-12 DAILY
  4. JUICE PLUS [Concomitant]
     Indication: NUTRITIONAL SUPPLEMENTATION
  5. JUICE PLUS [Concomitant]
     Indication: NUTRITIONAL SUPPLEMENTATION

REACTIONS (3)
  - Dandruff [Not Recovered/Not Resolved]
  - Skin disorder [Unknown]
  - Feeling hot [Unknown]
